FAERS Safety Report 24590619 (Version 1)
Quarter: 2024Q4

REPORT INFORMATION
  Report Type: Spontaneous
  Country: GB (occurrence: GB)
  Receive Date: 20241107
  Receipt Date: 20241107
  Transmission Date: 20250115
  Serious: Yes (Other)
  Sender: FERRING
  Company Number: GB-MHRA-33723137

PATIENT

DRUGS (1)
  1. DESMOPRESSIN ACETATE [Suspect]
     Active Substance: DESMOPRESSIN ACETATE
     Indication: Product used for unknown indication
     Route: 060

REACTIONS (5)
  - Muscle spasms [Unknown]
  - Brain fog [Unknown]
  - Fatigue [Unknown]
  - Constipation [Recovered/Resolved]
  - Pain [Unknown]
